FAERS Safety Report 4634635-8 (Version None)
Quarter: 2005Q2

REPORT INFORMATION
  Report Type: 
  Country: None (occurrence: None)
  Receive Date: 20050411
  Receipt Date: 20050330
  Transmission Date: 20051028
  Serious: Yes (Other)
  Sender: FDA-Public Use
  Company Number: 2005052634

PATIENT
  Sex: Female

DRUGS (1)
  1. SUDAFED 12 HOUR [Suspect]
     Indication: DRUG USE FOR UNKNOWN INDICATION
     Dosage: ORAL
     Route: 048

REACTIONS (8)
  - BLOOD PRESSURE INCREASED [None]
  - DYSPNOEA [None]
  - ERYTHEMA [None]
  - EYE SWELLING [None]
  - HYPERSENSITIVITY [None]
  - SWELLING [None]
  - THROAT TIGHTNESS [None]
  - VOMITING [None]
